FAERS Safety Report 4673960-1 (Version None)
Quarter: 2005Q2

REPORT INFORMATION
  Report Type: 
  Country: None (occurrence: None)
  Receive Date: 20050520
  Receipt Date: 20050509
  Transmission Date: 20051028
  Serious: Yes (Life-Threatening, Hospitalization)
  Sender: FDA-Public Use
  Company Number: MPS1-10377

PATIENT
  Age: 5 Year
  Sex: Male
  Weight: 21.4 kg

DRUGS (4)
  1. ALDURAZYME [Suspect]
     Indication: MUCOPOLYSACCHARIDOSIS I
     Dosage: 2000 UNITS QWK IV
     Route: 042
     Dates: start: 20030929
  2. ENARENAL [Concomitant]
  3. BERODUAL [Concomitant]
  4. PULMICORT [Concomitant]

REACTIONS (2)
  - BRONCHOPNEUMONIA [None]
  - RESPIRATORY FAILURE [None]
